FAERS Safety Report 23569922 (Version 2)
Quarter: 2024Q1

REPORT INFORMATION
  Report Type: Report from Study
  Country: US (occurrence: US)
  Receive Date: 20240227
  Receipt Date: 20240229
  Transmission Date: 20240410
  Serious: No
  Sender: FDA-Public Use
  Company Number: US-BIOVITRUM-2024-US-002854

PATIENT
  Age: 59 Year
  Sex: Female

DRUGS (1)
  1. KINERET [Suspect]
     Active Substance: ANAKINRA
     Indication: Rheumatoid arthritis
     Dosage: 100 MG DAILY
     Route: 058
     Dates: start: 20240125

REACTIONS (6)
  - Pruritus [Unknown]
  - Rash [Unknown]
  - Injection site bruising [Unknown]
  - Injection site erythema [Unknown]
  - Hyperhidrosis [Unknown]
  - Hypersensitivity [Unknown]
